FAERS Safety Report 13231124 (Version 2)
Quarter: 2017Q1

REPORT INFORMATION
  Report Type: Spontaneous
  Country: IT (occurrence: IT)
  Receive Date: 20170214
  Receipt Date: 20170215
  Transmission Date: 20170428
  Serious: Yes (Death)
  Sender: FDA-Public Use
  Company Number: IT-BAYER-2017-026845

PATIENT
  Age: 63 Year
  Sex: Female

DRUGS (7)
  1. NITROGLYCERIN. [Concomitant]
     Active Substance: NITROGLYCERIN
     Dosage: UNK
     Route: 042
     Dates: start: 20170123, end: 20170123
  2. ACETYLSALICYLIC ACID({=100 MG) [Suspect]
     Active Substance: ASPIRIN
     Indication: ACUTE MYOCARDIAL INFARCTION
     Dosage: 100 MG, QD
     Route: 048
     Dates: start: 20000801, end: 20170125
  3. BRILIQUE [Suspect]
     Active Substance: TICAGRELOR
     Dosage: 180 MG, ONCE
     Route: 048
     Dates: start: 20170125, end: 20170125
  4. FONDAPARINUX [Suspect]
     Active Substance: FONDAPARINUX
     Dosage: UNK
     Dates: end: 20170125
  5. HEPARIN [Suspect]
     Active Substance: HEPARIN SODIUM
     Dosage: 2500 IU, ONCE
     Route: 042
     Dates: start: 20170125, end: 20170125
  6. BRILIQUE [Suspect]
     Active Substance: TICAGRELOR
     Dosage: 90 MG, BID
  7. FONDAPARINUX [Suspect]
     Active Substance: FONDAPARINUX
     Dosage: DAILY DOSE 2.5 MG
     Route: 058
     Dates: start: 20170123, end: 20170123

REACTIONS (1)
  - Cerebral haemorrhage [Fatal]

NARRATIVE: CASE EVENT DATE: 20170125
